FAERS Safety Report 4373324-4 (Version None)
Quarter: 2004Q2

REPORT INFORMATION
  Report Type: 
  Country: None (occurrence: None)
  Receive Date: 20040603
  Receipt Date: 20030605
  Transmission Date: 20050107
  Serious: Yes (Other)
  Sender: FDA-Public Use
  Company Number: 008195

PATIENT
  Age: 11 Year
  Sex: Female
  Weight: 21.8 kg

DRUGS (1)
  1. PROTROPIN [Suspect]
     Indication: TURNER'S SYNDROME
     Dosage: 1.4 MG, QD, SUBCUTANEOUS
     Route: 058
     Dates: start: 19880621, end: 19921026

REACTIONS (2)
  - CHONDROSARCOMA [None]
  - DISEASE RECURRENCE [None]
